FAERS Safety Report 9738891 (Version 1)
Quarter: 2013Q4

REPORT INFORMATION
  Report Type: Spontaneous
  Country: US (occurrence: US)
  Receive Date: 20131209
  Receipt Date: 20131209
  Transmission Date: 20140711
  Serious: Yes (Other)
  Sender: FDA-Public Use
  Company Number: US-PFIZER INC-2013348411

PATIENT
  Age: 64 Year
  Sex: Female
  Weight: 52.15 kg

DRUGS (3)
  1. AZULFIDINE [Suspect]
     Indication: RHEUMATOID ARTHRITIS
     Dosage: 500 MG, 3X/DAY
     Route: 048
  2. AZULFIDINE [Suspect]
     Dosage: 500 MG, 3X/DAY
     Route: 048
  3. PREMPRO [Concomitant]
     Indication: HORMONE REPLACEMENT THERAPY
     Dosage: UNK

REACTIONS (6)
  - Rheumatoid arthritis [Unknown]
  - Rash erythematous [Unknown]
  - Swollen tongue [Recovered/Resolved]
  - Psoriasis [Unknown]
  - Off label use [Unknown]
  - Therapeutic response unexpected [Unknown]
